FAERS Safety Report 12907190 (Version 1)
Quarter: 2016Q4

REPORT INFORMATION
  Report Type: Spontaneous
  Country: FR (occurrence: FR)
  Receive Date: 20161103
  Receipt Date: 20161103
  Transmission Date: 20170207
  Serious: Yes (Disabling)
  Sender: FDA-Public Use
  Company Number: FR-ABBVIE-15P-056-1391398-00

PATIENT
  Sex: Male
  Weight: 94 kg

DRUGS (5)
  1. METFORMIN [Concomitant]
     Active Substance: METFORMIN HYDROCHLORIDE
     Indication: DIABETES MELLITUS
     Route: 048
  2. INSULIN (LANTUS) [Concomitant]
     Indication: DIABETES MELLITUS
     Route: 058
  3. RIBAVIRIN. [Suspect]
     Active Substance: RIBAVIRIN
     Indication: HEPATITIS C
     Dosage: 200 MG (3 IN THE MORNING AND 3 IN THE EVENING)
     Route: 048
     Dates: start: 20150313, end: 20150511
  4. INSULIN (HUMALOG) [Concomitant]
     Indication: DIABETES MELLITUS
     Route: 058
  5. VIEKIRAX [Suspect]
     Active Substance: OMBITASVIR\PARITAPREVIR\RITONAVIR
     Indication: HEPATITIS C
     Dosage: 12.5/75/50MG X 2 (ONCE DAILY, IN THE MORNING)
     Route: 048

REACTIONS (1)
  - Major depression [Recovering/Resolving]
